FAERS Safety Report 5201674-8 (Version None)
Quarter: 2007Q1

REPORT INFORMATION
  Report Type: 
  Country: None (occurrence: None)
  Receive Date: 20070108
  Receipt Date: 20070102
  Transmission Date: 20070707
  Serious: Yes (Death)
  Sender: FDA-Public Use
  Company Number: US-BOEHRINGER INGELHEIM PHARMACEUTICALS, INC.-2007-BP-00096BP

PATIENT
  Sex: Male

DRUGS (1)
  1. MIRAPEX [Suspect]

REACTIONS (4)
  - COMPLETED SUICIDE [None]
  - MULTIPLE INJURIES [None]
  - OBSESSIVE-COMPULSIVE PERSONALITY DISORDER [None]
  - PATHOLOGICAL GAMBLING [None]
